FAERS Safety Report 9187310 (Version 2)
Quarter: 2013Q2

REPORT INFORMATION
  Report Type: Report from Study
  Country: CA (occurrence: CA)
  Receive Date: 20130325
  Receipt Date: 20130606
  Transmission Date: 20140414
  Serious: Yes (Death, Life-Threatening)
  Sender: FDA-Public Use
  Company Number: CA-JNJFOC-20130309493

PATIENT
  Age: 72 Year
  Sex: Female
  Weight: 45 kg

DRUGS (14)
  1. REMICADE [Suspect]
     Indication: CROHN^S DISEASE
     Route: 042
     Dates: end: 20130314
  2. REMICADE [Suspect]
     Indication: CROHN^S DISEASE
     Route: 042
     Dates: start: 20120607, end: 20120913
  3. ARANESP [Concomitant]
     Route: 058
  4. COUMADIN [Concomitant]
     Dosage: 1 MG ORALLY 4.5 MG (ILLEGIBLE) WITH 4 MG DAILY
     Route: 048
  5. MURO 128 [Concomitant]
     Dosage: AT BEDTIME EYES
     Route: 065
  6. SODIUM BICARBONATE [Concomitant]
     Dosage: 4 TABLETS AT BREAKFAST, 4 TABLETS AT LUNCH AND 2 TABLETS AT BEDTIME
     Route: 065
  7. ZYLOPRIM [Concomitant]
     Dosage: 100 MG, 1/2 TABLET
     Route: 065
  8. REPLAVITE [Concomitant]
     Dosage: 100 (UNITS UNSPECIFIED)
     Route: 065
  9. D-TAB [Concomitant]
     Route: 065
  10. NADOLOL [Concomitant]
     Dosage: 40 MG, 1 1/2 TABLET
     Route: 065
  11. ACETAZOLAMIDE [Concomitant]
     Dosage: 250 MG, 1/2 TABLET IN THE MORNING (AM)
     Route: 065
  12. ROCALTROL [Concomitant]
     Dosage: 0.25 (UNITS UNSPECIFIED) 1 CAPS 2 TIMES (ILLEGIBLE)
     Route: 065
  13. PURINETHOL [Concomitant]
     Route: 065
  14. MAGLUCATE [Concomitant]
     Dosage: 500 MG, 1/2 TABLET
     Route: 065

REACTIONS (2)
  - Death [Fatal]
  - Leukaemia [Unknown]
